FAERS Safety Report 8982604 (Version 1)
Quarter: 2012Q4

REPORT INFORMATION
  Report Type: 
  Country: GB (occurrence: GB)
  Receive Date: 20121221
  Receipt Date: 20121221
  Transmission Date: 20130627
  Serious: Yes (Other)
  Sender: FDA-Public Use
  Company Number: GB-B.I. PHARMACEUTICALS,INC./RIDGEFIELD-2012-UK-01935UK

PATIENT
  Age: 89 Year
  Sex: Male

DRUGS (10)
  1. PRADAXA [Suspect]
     Dosage: 300 mg
     Route: 048
     Dates: start: 20121031
  2. AMITRIPTYLINE [Concomitant]
  3. ATORVASTATIN [Concomitant]
  4. BISOPROLOL [Concomitant]
  5. CLENIL MODULITE [Concomitant]
  6. DIGOXIN [Concomitant]
  7. LATANOPROST [Concomitant]
  8. PERINDOPRIL [Concomitant]
  9. QUININE [Concomitant]
  10. SALBUTAMOL [Concomitant]

REACTIONS (1)
  - Transient ischaemic attack [Unknown]
